FAERS Safety Report 18181082 (Version 1)
Quarter: 2020Q3

REPORT INFORMATION
  Report Type: Spontaneous
  Country: US (occurrence: US)
  Receive Date: 20200821
  Receipt Date: 20200821
  Transmission Date: 20201103
  Serious: No
  Sender: FDA-Public Use
  Company Number: US-ASTRAZENECA-2020SF03495

PATIENT
  Sex: Female
  Weight: 40.8 kg

DRUGS (5)
  1. FOLIC ACID. [Concomitant]
     Active Substance: FOLIC ACID
  2. POTASSIUM [Concomitant]
     Active Substance: POTASSIUM
  3. DALIRESP [Suspect]
     Active Substance: ROFLUMILAST
     Indication: CHRONIC OBSTRUCTIVE PULMONARY DISEASE
     Route: 048
  4. IRON PILLS [Concomitant]
     Active Substance: IRON
  5. VITAMIN PILLS [Concomitant]

REACTIONS (5)
  - Fungal infection [Unknown]
  - Lower respiratory tract congestion [Unknown]
  - Product use issue [Unknown]
  - Dyspnoea [Unknown]
  - Failure to thrive [Unknown]
